FAERS Safety Report 8950021 (Version 1)
Quarter: 2012Q4

REPORT INFORMATION
  Report Type: 
  Country: US (occurrence: US)
  Receive Date: 20121205
  Receipt Date: 20121205
  Transmission Date: 20130627
  Serious: No
  Sender: FDA-Public Use
  Company Number: US-ASTRAZENECA-2012SE89505

PATIENT
  Age: 56 Year
  Sex: Male

DRUGS (3)
  1. SEROQUEL XR [Suspect]
     Indication: AFFECTIVE DISORDER
     Route: 048
  2. CYMBALTA [Concomitant]
  3. SAPHRIS [Concomitant]

REACTIONS (1)
  - Penis disorder [Unknown]
